FAERS Safety Report 5332287-5 (Version None)
Quarter: 2007Q2

REPORT INFORMATION
  Report Type: 
  Country: None (occurrence: None)
  Receive Date: 20070523
  Receipt Date: 20070510
  Transmission Date: 20071010
  Serious: Yes (Hospitalization)
  Sender: FDA-Public Use
  Company Number: JP-MERCK-0705USA03781

PATIENT
  Age: 79 Year
  Sex: Male

DRUGS (3)
  1. COZAAR [Suspect]
     Indication: HYPERTENSION
     Route: 048
  2. CARDENALIN [Suspect]
     Indication: HYPERTENSION
     Route: 048
  3. [THERAPY UNSPECIFIED] [Suspect]
     Route: 048

REACTIONS (2)
  - ADVERSE EVENT [None]
  - LIVER DISORDER [None]
